FAERS Safety Report 19361142 (Version 1)
Quarter: 2021Q2

REPORT INFORMATION
  Report Type: Spontaneous
  Country: JP (occurrence: JP)
  Receive Date: 20210603
  Receipt Date: 20210603
  Transmission Date: 20210717
  Serious: Yes (Hospitalization)
  Sender: FDA-Public Use
  Company Number: JP-NOVOPROD-816783

PATIENT
  Age: 76 Year
  Sex: Male
  Weight: 66 kg

DRUGS (6)
  1. VICTOZA [Suspect]
     Active Substance: LIRAGLUTIDE
     Dosage: 0.3MG
     Route: 058
     Dates: start: 20210423, end: 20210423
  2. VICTOZA [Suspect]
     Active Substance: LIRAGLUTIDE
     Indication: DIABETES MELLITUS
     Dosage: 0.3MG
     Route: 058
     Dates: start: 202011
  3. METFORMIN HYDROCHLORIDE. [Suspect]
     Active Substance: METFORMIN HYDROCHLORIDE
     Indication: DIABETES MELLITUS
     Dosage: 1500 MG, QD
     Route: 048
     Dates: start: 202103, end: 20210426
  4. VICTOZA [Suspect]
     Active Substance: LIRAGLUTIDE
     Dosage: 0.4MG
     Route: 058
     Dates: start: 20210324
  5. VICTOZA [Suspect]
     Active Substance: LIRAGLUTIDE
     Dosage: 0.3MG
     Route: 058
     Dates: start: 20210222
  6. VICTOZA [Suspect]
     Active Substance: LIRAGLUTIDE
     Dosage: 0.6MG
     Route: 058
     Dates: start: 20210322

REACTIONS (2)
  - Abdominal pain [Recovered/Resolved]
  - Intentional product use issue [Unknown]

NARRATIVE: CASE EVENT DATE: 20210324
